FAERS Safety Report 20980751 (Version 2)
Quarter: 2022Q3

REPORT INFORMATION
  Report Type: Report from Study
  Country: BR (occurrence: BR)
  Receive Date: 20220620
  Receipt Date: 20220830
  Transmission Date: 20221026
  Serious: Yes (Death, Hospitalization, Other)
  Sender: FDA-Public Use
  Company Number: BR-NOVARTISPH-NVSC2022BR139349

PATIENT
  Age: 49 Year
  Sex: Female
  Weight: 50 kg

DRUGS (2)
  1. CRIZANLIZUMAB [Suspect]
     Active Substance: CRIZANLIZUMAB
     Indication: Sickle cell disease
     Dosage: THE DATE THIS PATIENT LAST INFUSED THE MEDICATION, WHICH SHE USED REGULARLY, WAS ON 09/MAR
     Route: 065
  2. CRIZANLIZUMAB [Suspect]
     Active Substance: CRIZANLIZUMAB
     Dosage: 50 MG/KG
     Route: 042
     Dates: start: 20210224, end: 20220309

REACTIONS (10)
  - Gastrointestinal infection [Fatal]
  - Diarrhoea [Fatal]
  - Anaemia [Unknown]
  - Haemoglobin decreased [Unknown]
  - Infected skin ulcer [Unknown]
  - Pneumonia [Unknown]
  - Thrombosis [Unknown]
  - Cerebrovascular accident [Unknown]
  - Sepsis [Unknown]
  - Renal failure [Unknown]

NARRATIVE: CASE EVENT DATE: 20220408
